FAERS Safety Report 10590375 (Version 2)
Quarter: 2015Q2

REPORT INFORMATION
  Report Type: Spontaneous
  Country: US (occurrence: US)
  Receive Date: 20141118
  Receipt Date: 20150410
  Transmission Date: 20150821
  Serious: Yes (Hospitalization)
  Sender: FDA-Public Use
  Company Number: US-BAYER-2014-167882

PATIENT
  Age: 32 Year
  Sex: Female
  Weight: 68.93 kg

DRUGS (1)
  1. MIRENA [Suspect]
     Active Substance: LEVONORGESTREL
     Indication: CONTRACEPTION
     Dosage: 20 MCG/24HR, CONT
     Route: 015
     Dates: start: 20080910, end: 20100611

REACTIONS (13)
  - Injury [None]
  - Menorrhagia [None]
  - Uterine perforation [None]
  - Amenorrhoea [None]
  - Endometriosis [None]
  - Scar [None]
  - Device issue [None]
  - Abdominal pain [None]
  - Abdominal pain lower [None]
  - Fatigue [None]
  - Emotional distress [None]
  - Pelvic pain [None]
  - Dysmenorrhoea [None]

NARRATIVE: CASE EVENT DATE: 2010
